FAERS Safety Report 10516744 (Version 1)
Quarter: 2014Q4

REPORT INFORMATION
  Report Type: Spontaneous
  Country: US (occurrence: US)
  Receive Date: 20141014
  Receipt Date: 20141014
  Transmission Date: 20150528
  Serious: No
  Sender: FDA-Public Use
  Company Number: US-PFIZER INC-2014279288

PATIENT
  Age: 68 Year
  Sex: Female
  Weight: 61.68 kg

DRUGS (4)
  1. MOTRIN [Concomitant]
     Active Substance: IBUPROFEN
     Dosage: UNK
  2. CELEBREX [Suspect]
     Active Substance: CELECOXIB
     Indication: ARTHRITIS
     Dosage: 400 MG, DAILY
     Dates: start: 1990
  3. CELEBREX [Suspect]
     Active Substance: CELECOXIB
     Dosage: 200 MG, DAILY
  4. SIMVASTATIN. [Concomitant]
     Active Substance: SIMVASTATIN
     Indication: BLOOD CHOLESTEROL INCREASED
     Dosage: 40 MG, 1X/DAY

REACTIONS (9)
  - Body height decreased [Unknown]
  - Fatigue [Unknown]
  - Grip strength decreased [Unknown]
  - Arthralgia [Unknown]
  - Arthropathy [Unknown]
  - Somnolence [Unknown]
  - Pain in extremity [Unknown]
  - Arthritis [Unknown]
  - Hypoacusis [Unknown]
